FAERS Safety Report 13805909 (Version 1)
Quarter: 2017Q3

REPORT INFORMATION
  Report Type: Spontaneous
  Country: IT (occurrence: IT)
  Receive Date: 20170728
  Receipt Date: 20170728
  Transmission Date: 20171127
  Serious: Yes (Death, Hospitalization)
  Sender: FDA-Public Use
  Company Number: IT-TEVA-790234ROM

PATIENT
  Age: 76 Year
  Sex: Male

DRUGS (4)
  1. METHOTREXATE. [Suspect]
     Active Substance: METHOTREXATE
     Indication: B-CELL LYMPHOMA
     Dosage: 1 G/M2 ON DAY 2
     Route: 065
     Dates: start: 20140315, end: 20140315
  2. CYTARABINE. [Suspect]
     Active Substance: CYTARABINE
     Indication: B-CELL LYMPHOMA
     Dosage: TOTAL DOSE GIVEN ON DAYS 3 AND 4
     Route: 065
     Dates: start: 20140316, end: 20140317
  3. RITUXIMAB. [Suspect]
     Active Substance: RITUXIMAB
     Indication: B-CELL LYMPHOMA
     Dosage: 375 MG/M2 ON DAY 1
     Route: 065
     Dates: start: 20140314, end: 20140314
  4. CEFTRIAXONE. [Concomitant]
     Active Substance: CEFTRIAXONE
     Indication: EVIDENCE BASED TREATMENT
     Dosage: 2 G DAILY
     Route: 065

REACTIONS (6)
  - Cellulitis [Unknown]
  - Campylobacter infection [Fatal]
  - Bacterial sepsis [Fatal]
  - Colitis [Unknown]
  - Thrombocytopenia [Fatal]
  - Neutropenia [Fatal]
